FAERS Safety Report 10046487 (Version 1)
Quarter: 2014Q1

REPORT INFORMATION
  Report Type: Spontaneous
  Country: US (occurrence: US)
  Receive Date: 20140331
  Receipt Date: 20140331
  Transmission Date: 20141002
  Serious: No
  Sender: FDA-Public Use
  Company Number: US-BIOGENIDEC-2014BI027859

PATIENT
  Age: 55 Year
  Sex: Female

DRUGS (5)
  1. TECFIDERA [Suspect]
     Indication: MULTIPLE SCLEROSIS
     Route: 048
     Dates: start: 20140301, end: 20140307
  2. TECFIDERA [Suspect]
     Indication: MULTIPLE SCLEROSIS
     Route: 048
     Dates: start: 20140308
  3. GABAPENTIN [Concomitant]
  4. LEVOTHYROXINE [Concomitant]
  5. OXYCODONE [Concomitant]

REACTIONS (2)
  - Fatigue [Recovered/Resolved]
  - Pruritus [Not Recovered/Not Resolved]
